FAERS Safety Report 20300321 (Version 2)
Quarter: 2022Q1

REPORT INFORMATION
  Report Type: Spontaneous
  Country: FR (occurrence: FR)
  Receive Date: 20220105
  Receipt Date: 20220111
  Transmission Date: 20220423
  Serious: Yes (Hospitalization)
  Sender: FDA-Public Use
  Company Number: None

PATIENT
  Age: 93 Year
  Sex: Male
  Weight: 87.9 kg

DRUGS (10)
  1. LOVENOX [Suspect]
     Active Substance: ENOXAPARIN SODIUM
     Indication: Embolism
     Dosage: 0.8 ML, BID
     Route: 058
     Dates: start: 20210910, end: 20210913
  2. LOVENOX [Suspect]
     Active Substance: ENOXAPARIN SODIUM
     Dosage: 0.9 ML, BID
     Route: 058
     Dates: start: 20210928, end: 20211119
  3. LOVENOX [Suspect]
     Active Substance: ENOXAPARIN SODIUM
     Dosage: 0.9 ML, BID
     Route: 058
     Dates: start: 20210913, end: 20210922
  4. LOVENOX [Suspect]
     Active Substance: ENOXAPARIN SODIUM
     Dosage: 0.4 ML, QD
     Route: 058
     Dates: start: 20211119, end: 20211207
  5. HEPARIN CALCIUM [Concomitant]
     Active Substance: HEPARIN CALCIUM
     Indication: Embolism
     Dosage: HEPARIN CALCIUM PANPHARMA 25,000 IU / 1 ML, SOLUTION FOR INJECTION IN AMPOULE 0.6 ML, BID
     Route: 058
     Dates: start: 20211003, end: 20211004
  6. HEPARIN CALCIUM [Concomitant]
     Active Substance: HEPARIN CALCIUM
     Route: 058
     Dates: start: 20211005, end: 20211007
  7. HEPARIN CALCIUM [Concomitant]
     Active Substance: HEPARIN CALCIUM
     Route: 058
     Dates: start: 20211004, end: 20211005
  8. ELIQUIS [Concomitant]
     Active Substance: APIXABAN
     Indication: Embolism
     Dosage: 2.5 MG, BID
     Route: 048
     Dates: start: 20210923, end: 20210928
  9. DOLIPRANE [Concomitant]
     Active Substance: ACETAMINOPHEN
     Indication: Pain
     Dosage: 2 DF, PRN (IN CASE OF NEED)
     Route: 048
  10. LEVOTHYROXINE [Concomitant]
     Active Substance: LEVOTHYROXINE
     Indication: Hypothyroidism
     Dosage: 1 DF
     Route: 048

REACTIONS (1)
  - Blood blister [Recovered/Resolved]

NARRATIVE: CASE EVENT DATE: 20210920
